FAERS Safety Report 10083218 (Version 3)
Quarter: 2014Q2

REPORT INFORMATION
  Report Type: Report from Study
  Country: JP (occurrence: JP)
  Receive Date: 20140417
  Receipt Date: 20140425
  Transmission Date: 20141212
  Serious: Yes (Hospitalization)
  Sender: FDA-Public Use
  Company Number: JP-BRISTOL-MYERS SQUIBB COMPANY-20123659

PATIENT
  Age: 42 Year
  Sex: Male
  Weight: 52.8 kg

DRUGS (7)
  1. ARIPIPRAZOLE [Suspect]
     Indication: SCHIZOPHRENIA
     Dosage: ON 18DEC13-20DEC13:12MG:3DAYS?21DEC13-30DEC13:24MG:10DAYS?02JAN14-08JAN14:24MG:8DAYS
     Route: 048
     Dates: start: 20131218
  2. BLINDED: OPC-34712 [Suspect]
     Indication: SCHIZOPHRENIA
     Dates: start: 20131106, end: 20131217
  3. BLINDED: PLACEBO [Suspect]
     Indication: SCHIZOPHRENIA
     Dates: start: 20131106, end: 20131217
  4. LORAZEPAM [Concomitant]
     Dosage: TABS
     Dates: start: 20131218, end: 20131230
  5. TAKEPRON [Concomitant]
     Dates: start: 20140102
  6. LULLAN [Concomitant]
     Dates: start: 20140107, end: 20140107
  7. SELBEX [Concomitant]
     Dates: start: 20140107, end: 20140107

REACTIONS (2)
  - Gastric ulcer haemorrhage [Recovered/Resolved]
  - Schizophrenia [Recovered/Resolved]
